FAERS Safety Report 25590824 (Version 1)
Quarter: 2025Q3

REPORT INFORMATION
  Report Type: Report from Study
  Country: EU (occurrence: EU)
  Receive Date: 20250722
  Receipt Date: 20250722
  Transmission Date: 20251020
  Serious: Yes (Hospitalization, Other)
  Sender: PFIZER
  Company Number: EU-SA-2025SA182393

PATIENT
  Sex: Male

DRUGS (3)
  1. VANCOMYCIN HYDROCHLORIDE [Suspect]
     Active Substance: VANCOMYCIN HYDROCHLORIDE
  2. BELUMOSUDIL MESYLATE [Suspect]
     Active Substance: BELUMOSUDIL MESYLATE
     Indication: Graft versus host disease in gastrointestinal tract
     Dosage: 200 MG, QD
     Dates: end: 202506
  3. BELUMOSUDIL MESYLATE [Suspect]
     Active Substance: BELUMOSUDIL MESYLATE
     Dosage: 200 MG, QD
     Dates: start: 20250628

REACTIONS (2)
  - Infection [Unknown]
  - Renal failure [Recovered/Resolved]

NARRATIVE: CASE EVENT DATE: 20250623
